FAERS Safety Report 7713182-0 (Version None)
Quarter: 2011Q3

REPORT INFORMATION
  Report Type: 
  Country: None (occurrence: None)
  Receive Date: 20110826
  Receipt Date: 20110817
  Transmission Date: 20111222
  Serious: Yes (Hospitalization)
  Sender: FDA-Public Use
  Company Number: US-SANOFI-AVENTIS-2011SA053903

PATIENT
  Age: 46 Year
  Sex: Male
  Weight: 127.4 kg

DRUGS (10)
  1. LASIX [Concomitant]
     Indication: DIURETIC THERAPY
     Route: 048
  2. HUMALOG [Concomitant]
     Indication: DIABETES MELLITUS
     Dosage: 75/25 MG TWICE DAILY
  3. ACCUPRIL [Suspect]
     Indication: DIABETES MELLITUS
     Route: 065
  4. GLUCOPHAGE [Suspect]
     Indication: DIABETES MELLITUS
     Route: 065
     Dates: end: 20100101
  5. GLYSET [Suspect]
     Indication: DIABETES MELLITUS
     Route: 065
  6. LANTUS [Concomitant]
     Indication: DIABETES MELLITUS
     Dosage: DOSE:15 UNIT(S)
     Route: 058
  7. VIAGRA [Suspect]
     Route: 065
  8. AVANDIA [Suspect]
     Indication: DIABETES MELLITUS
     Route: 065
     Dates: end: 20100101
  9. INSULIN [Suspect]
     Indication: DIABETES MELLITUS
  10. AMARYL [Suspect]
     Route: 048

REACTIONS (1)
  - THROMBOSIS [None]
